FAERS Safety Report 7185499-2 (Version None)
Quarter: 2010Q4

REPORT INFORMATION
  Report Type: 
  Country: None (occurrence: None)
  Receive Date: 20101222
  Receipt Date: 20101028
  Transmission Date: 20110411
  Serious: No
  Sender: FDA-Public Use
  Company Number: US-TYCO HEALTHCARE/MALLINCKRODT-T201002187

PATIENT
  Age: 50 Year
  Sex: Female

DRUGS (3)
  1. TECHNETIUM TC 99M SESTAMIBI [Suspect]
     Indication: SCAN MYOCARDIAL PERFUSION
     Dosage: UNK
     Dates: start: 20101005, end: 20101005
  2. ULTRA-TECHNEKOW [Concomitant]
     Indication: SCAN MYOCARDIAL PERFUSION
     Dosage: 12.1 MCI, SINGLE
     Route: 042
     Dates: start: 20101005, end: 20101005
  3. ULTRA-TECHNEKOW [Concomitant]
     Dosage: 11 MCI, SINGLE
     Route: 042
     Dates: start: 20101005, end: 20101005

REACTIONS (1)
  - DRUG INEFFECTIVE [None]
